FAERS Safety Report 14524319 (Version 1)
Quarter: 2018Q1

REPORT INFORMATION
  Report Type: Spontaneous
  Country: US (occurrence: US)
  Receive Date: 20180213
  Receipt Date: 20180213
  Transmission Date: 20180509
  Serious: No
  Sender: FDA-Public Use
  Company Number: US-PFIZER INC-2018060879

PATIENT
  Age: 61 Year
  Sex: Male
  Weight: 48.98 kg

DRUGS (2)
  1. GABAPENTIN. [Suspect]
     Active Substance: GABAPENTIN
     Indication: PAIN
     Dosage: 100 MG, SINGLE (ONCE)
     Dates: start: 2017, end: 2017
  2. GABAPENTIN. [Suspect]
     Active Substance: GABAPENTIN
     Indication: ANXIETY

REACTIONS (2)
  - Product use in unapproved indication [Unknown]
  - Feeling abnormal [Recovered/Resolved]

NARRATIVE: CASE EVENT DATE: 2017
